FAERS Safety Report 4740761-5 (Version None)
Quarter: 2005Q3

REPORT INFORMATION
  Report Type: 
  Country: None (occurrence: None)
  Receive Date: 20050801
  Receipt Date: 20050629
  Transmission Date: 20060218
  Serious: No
  Sender: FDA-Public Use
  Company Number: 2005PV000174

PATIENT
  Age: 59 Year
  Sex: Female
  Weight: 98.4306 kg

DRUGS (16)
  1. BYETTA [Suspect]
     Indication: DIABETES MELLITUS NON-INSULIN-DEPENDENT
     Dosage: 5 UG;BID;SC
     Route: 058
     Dates: start: 20050615
  2. SYNTHROID [Concomitant]
  3. GLUCOPHAGE [Concomitant]
  4. ACTOS [Concomitant]
  5. AMARYL [Concomitant]
  6. BEXTRA [Concomitant]
  7. RHINOCORT [Concomitant]
  8. ENALAPRIL [Concomitant]
  9. LIPITOR [Concomitant]
  10. CLARITIN [Concomitant]
  11. FOSAMAX [Concomitant]
  12. TOPAMAX [Concomitant]
  13. SINGULAIR [Concomitant]
  14. VITAMINS [Concomitant]
  15. CALCIUM GLUCONATE [Concomitant]
  16. INSULIN [Concomitant]

REACTIONS (4)
  - COUGH [None]
  - DECREASED APPETITE [None]
  - DIARRHOEA [None]
  - WEIGHT DECREASED [None]
